FAERS Safety Report 8252298-X (Version None)
Quarter: 2012Q2

REPORT INFORMATION
  Report Type: 
  Country: None (occurrence: None)
  Receive Date: 20120402
  Receipt Date: 20111011
  Transmission Date: 20120825
  Serious: No
  Sender: FDA-Public Use
  Company Number: US-ABBOTT-11P-163-0865244-00

PATIENT
  Age: 45 Year
  Sex: Male
  Weight: 104.87 kg

DRUGS (6)
  1. LISINOPRIL [Concomitant]
     Indication: HYPERTENSION
  2. AMBIEN [Concomitant]
     Indication: INSOMNIA
  3. NAPROSYN [Concomitant]
     Indication: SWELLING
  4. ANDROGEL [Suspect]
     Indication: BLOOD TESTOSTERONE DECREASED
     Dosage: 4 PUMP
     Route: 061
  5. ATENOLOL [Concomitant]
     Indication: HYPERTENSION
  6. OXYCODONE HCL [Concomitant]
     Indication: PRODUCT USED FOR UNKNOWN INDICATION
     Dosage: 10/325MG PRN

REACTIONS (2)
  - HYPERHIDROSIS [None]
  - DRUG DOSE OMISSION [None]
